FAERS Safety Report 9547375 (Version 2)
Quarter: 2014Q1

REPORT INFORMATION
  Report Type: Spontaneous
  Country: GB (occurrence: GB)
  Receive Date: 20130924
  Receipt Date: 20140122
  Transmission Date: 20141002
  Serious: Yes (Other)
  Sender: FDA-Public Use
  Company Number: GB-UCBSA-097873

PATIENT
  Sex: Male

DRUGS (2)
  1. VIMPAT [Suspect]
     Indication: EPILEPSY
     Dosage: UNKNOWN DOSE
     Dates: start: 201303, end: 2013
  2. VIMPAT [Suspect]
     Indication: EPILEPSY
     Dosage: DOSE INCREASED
     Dates: start: 2013

REACTIONS (1)
  - Myoclonus [Recovered/Resolved]
